FAERS Safety Report 12758947 (Version 1)
Quarter: 2016Q3

REPORT INFORMATION
  Report Type: Spontaneous
  Country: JP (occurrence: JP)
  Receive Date: 20160919
  Receipt Date: 20160919
  Transmission Date: 20161109
  Serious: Yes (Hospitalization)
  Sender: FDA-Public Use
  Company Number: JP-TEVA-2016-JP-002024J

PATIENT
  Age: 3 Decade
  Sex: Female

DRUGS (9)
  1. PHENYTOIN/PHENOBARBITAL COMBINED DRUG [Suspect]
     Active Substance: PHENOBARBITAL\PHENYTOIN
     Indication: INTENTIONAL SELF-INJURY
     Route: 048
  2. OLANZAPINE TABLET 10MG TEVA [Suspect]
     Active Substance: OLANZAPINE
     Indication: BORDERLINE PERSONALITY DISORDER
     Route: 065
  3. TRIAZOLAM TABLET 0.25MG TEVA [Suspect]
     Active Substance: TRIAZOLAM
     Indication: INTENTIONAL SELF-INJURY
     Route: 048
  4. SODIUM VALPROATE [Suspect]
     Active Substance: VALPROATE SODIUM
     Indication: BORDERLINE PERSONALITY DISORDER
     Route: 065
  5. DEZOLAM TABLET 1MG [Suspect]
     Active Substance: ETIZOLAM
     Indication: BORDERLINE PERSONALITY DISORDER
     Route: 065
  6. FLUNITRAZEPAM [Suspect]
     Active Substance: FLUNITRAZEPAM
     Indication: INTENTIONAL SELF-INJURY
     Route: 048
  7. ALPRAZOLAM. [Suspect]
     Active Substance: ALPRAZOLAM
     Indication: BORDERLINE PERSONALITY DISORDER
     Route: 065
  8. ZOLPIDEM TARTRATE TABLET 10MG TEVA [Suspect]
     Active Substance: ZOLPIDEM TARTRATE
     Indication: INTENTIONAL SELF-INJURY
     Route: 048
  9. SERTRALINE HYDROCHLORIDE. [Suspect]
     Active Substance: SERTRALINE HYDROCHLORIDE
     Indication: BORDERLINE PERSONALITY DISORDER
     Route: 065

REACTIONS (13)
  - Overdose [Unknown]
  - Anxiety [None]
  - Feeling drunk [Recovered/Resolved]
  - Tremor [None]
  - Aggression [Recovered/Resolved]
  - Intentional overdose [None]
  - Loss of consciousness [Recovered/Resolved]
  - Withdrawal syndrome [Unknown]
  - Drug ineffective [Unknown]
  - Hyperhidrosis [None]
  - Somnolence [Recovered/Resolved]
  - Alcohol poisoning [None]
  - Palpitations [None]
